FAERS Safety Report 12195478 (Version 1)
Quarter: 2016Q1

REPORT INFORMATION
  Report Type: Spontaneous
  Country: US (occurrence: US)
  Receive Date: 20160321
  Receipt Date: 20160321
  Transmission Date: 20160526
  Serious: No
  Sender: FDA-Public Use
  Company Number: US-REGENERON PHARMACEUTICALS, INC.-2014-19740

PATIENT
  Sex: Female

DRUGS (2)
  1. ARCALYST [Suspect]
     Active Substance: RILONACEPT
     Indication: CRYOPYRIN ASSOCIATED PERIODIC SYNDROME
     Dosage: 2 VIALS EVERY 5 DAYS
     Dates: end: 201404
  2. ARCALYST [Suspect]
     Active Substance: RILONACEPT
     Dosage: 4 DOSES EVERY 20 DAYS

REACTIONS (2)
  - Blood disorder [Not Recovered/Not Resolved]
  - Infection [Not Recovered/Not Resolved]
